FAERS Safety Report 21762818 (Version 1)
Quarter: 2022Q4

REPORT INFORMATION
  Report Type: Spontaneous
  Country: US (occurrence: US)
  Receive Date: 20221221
  Receipt Date: 20221221
  Transmission Date: 20230113
  Serious: No
  Sender: FDA-Public Use
  Company Number: US-ORGANON-O2212USA001136

PATIENT
  Age: 31 Year
  Sex: Male

DRUGS (8)
  1. REMERON [Suspect]
     Active Substance: MIRTAZAPINE
     Indication: Drug use disorder
     Dosage: UNK
     Route: 048
  2. REMERON [Suspect]
     Active Substance: MIRTAZAPINE
     Indication: Body dysmorphic disorder
  3. BUPRENORPHINE\NALOXONE [Concomitant]
     Active Substance: BUPRENORPHINE\NALOXONE
     Indication: Drug use disorder
     Dosage: UNK
  4. FLUOXETINE [Concomitant]
     Active Substance: FLUOXETINE HYDROCHLORIDE
     Indication: Body dysmorphic disorder
     Dosage: UNK
  5. FLUOXETINE [Concomitant]
     Active Substance: FLUOXETINE HYDROCHLORIDE
     Indication: Drug use disorder
  6. LORAZEPAM [Concomitant]
     Active Substance: LORAZEPAM
     Indication: Body dysmorphic disorder
     Dosage: UNK; LORAZEPAM TAPER
  7. LORAZEPAM [Concomitant]
     Active Substance: LORAZEPAM
     Indication: Drug use disorder
  8. SUBOXONE [Concomitant]
     Active Substance: BUPRENORPHINE HYDROCHLORIDE\NALOXONE HYDROCHLORIDE
     Dosage: UNK

REACTIONS (2)
  - Product use in unapproved indication [Unknown]
  - Product prescribing issue [Unknown]
